FAERS Safety Report 5453502-3 (Version None)
Quarter: 2007Q3

REPORT INFORMATION
  Report Type: 
  Country: None (occurrence: None)
  Receive Date: 20070913
  Receipt Date: 20070904
  Transmission Date: 20080115
  Serious: Yes (Hospitalization)
  Sender: FDA-Public Use
  Company Number: GXBR2007US01550

PATIENT
  Age: 44 Year
  Sex: Female
  Weight: 69.8 kg

DRUGS (1)
  1. PHENDIMENTRAZINE TARTRATE 70MG TAB [Suspect]
     Indication: OBESITY
     Dosage: 35 MG, TIDSDO, ORAL
     Route: 048
     Dates: start: 20070706, end: 20070901

REACTIONS (4)
  - ABASIA [None]
  - DYSTONIA [None]
  - HYPOAESTHESIA [None]
  - SENSORY LOSS [None]
